FAERS Safety Report 19742190 (Version 1)
Quarter: 2021Q3

REPORT INFORMATION
  Report Type: Spontaneous
  Country: CA (occurrence: CA)
  Receive Date: 20210825
  Receipt Date: 20210825
  Transmission Date: 20211014
  Serious: Yes (Hospitalization, Other)
  Sender: FDA-Public Use
  Company Number: CA-AMGEN-CANSP2021129207

PATIENT
  Age: 30 Year
  Sex: Male

DRUGS (15)
  1. REPATHA [Suspect]
     Active Substance: EVOLOCUMAB
     Indication: LOW DENSITY LIPOPROTEIN ABNORMAL
     Dosage: UNK
     Route: 058
  2. REPATHA [Suspect]
     Active Substance: EVOLOCUMAB
     Dosage: UNK
     Route: 058
  3. EICOSAPENTAENOIC ACID [Suspect]
     Active Substance: ICOSAPENT
     Indication: LOW DENSITY LIPOPROTEIN ABNORMAL
     Dosage: UNK
     Route: 065
  4. EZETIMIBE. [Suspect]
     Active Substance: EZETIMIBE
     Indication: LOW DENSITY LIPOPROTEIN ABNORMAL
     Dosage: UNK
     Route: 065
  5. JUXTAPID [Suspect]
     Active Substance: LOMITAPIDE MESYLATE
     Indication: LOW DENSITY LIPOPROTEIN ABNORMAL
     Dosage: UNK
     Route: 065
  6. LESCOL [Suspect]
     Active Substance: FLUVASTATIN SODIUM
     Indication: LOW DENSITY LIPOPROTEIN ABNORMAL
     Dosage: UNK
     Route: 065
  7. LIPITOR [Suspect]
     Active Substance: ATORVASTATIN CALCIUM
     Indication: LOW DENSITY LIPOPROTEIN ABNORMAL
     Dosage: UNK
     Route: 065
  8. NIACIN. [Suspect]
     Active Substance: NIACIN
     Indication: LOW DENSITY LIPOPROTEIN ABNORMAL
     Dosage: UNK
     Route: 065
  9. PRALUENT [Suspect]
     Active Substance: ALIROCUMAB
     Indication: LOW DENSITY LIPOPROTEIN ABNORMAL
     Dosage: UNK
     Route: 058
  10. OLESTYR [Suspect]
     Active Substance: CHOLESTYRAMINE
     Indication: LOW DENSITY LIPOPROTEIN ABNORMAL
     Dosage: UNK
     Route: 048
  11. PRAVASTATIN SODIUM. [Suspect]
     Active Substance: PRAVASTATIN SODIUM
     Indication: LOW DENSITY LIPOPROTEIN ABNORMAL
     Dosage: UNK
     Route: 065
  12. LODALIS [Suspect]
     Active Substance: COLESEVELAM HYDROCHLORIDE
     Indication: LOW DENSITY LIPOPROTEIN ABNORMAL
     Dosage: UNK
     Route: 048
  13. MEVACOR [Suspect]
     Active Substance: LOVASTATIN
     Indication: LOW DENSITY LIPOPROTEIN ABNORMAL
     Dosage: UNK
     Route: 065
  14. ROSUVASTATIN CALCIUM. [Suspect]
     Active Substance: ROSUVASTATIN CALCIUM
     Indication: LOW DENSITY LIPOPROTEIN ABNORMAL
     Dosage: UNK
     Route: 048
  15. ZOCOR [Suspect]
     Active Substance: SIMVASTATIN
     Indication: LOW DENSITY LIPOPROTEIN ABNORMAL
     Dosage: UNK
     Route: 065

REACTIONS (3)
  - Myocardial infarction [Unknown]
  - Cerebrovascular accident [Unknown]
  - Drug ineffective [Unknown]
